FAERS Safety Report 12447654 (Version 1)
Quarter: 2016Q2

REPORT INFORMATION
  Report Type: Spontaneous
  Country: US (occurrence: None)
  Receive Date: 20160607
  Receipt Date: 20160607
  Transmission Date: 20160815
  Serious: Yes (Hospitalization)
  Sender: FDA-Public Use
  Company Number: None

PATIENT
  Age: 60 Year
  Sex: Male
  Weight: 72.2 kg

DRUGS (23)
  1. NOVOLOG [Concomitant]
     Active Substance: INSULIN ASPART
  2. COMBIVENT [Concomitant]
     Active Substance: ALBUTEROL SULFATE\IPRATROPIUM BROMIDE
  3. AMLODIPINE [Concomitant]
     Active Substance: AMLODIPINE BESYLATE
  4. LATANOPROST. [Concomitant]
     Active Substance: LATANOPROST
  5. ZOLPIDEM [Concomitant]
     Active Substance: ZOLPIDEM\ZOLPIDEM TARTRATE
  6. LOSARTAN. [Concomitant]
     Active Substance: LOSARTAN
  7. DOCUSATE SODIUM. [Concomitant]
     Active Substance: DOCUSATE SODIUM
  8. NALOXONE [Concomitant]
     Active Substance: NALOXONE
  9. SOFOSBUVIR 400MG GILEAD [Suspect]
     Active Substance: SOFOSBUVIR
     Indication: HEPATITIS C
     Route: 048
     Dates: start: 20160223
  10. GENERLAC [Concomitant]
     Active Substance: LACTULOSE
  11. TAMSULOSIN [Concomitant]
     Active Substance: TAMSULOSIN
  12. GABAPENTIN. [Concomitant]
     Active Substance: GABAPENTIN
  13. ASPIRIN. [Concomitant]
     Active Substance: ASPIRIN
  14. OXYCODONE [Concomitant]
     Active Substance: OXYCODONE
  15. LASIX [Concomitant]
     Active Substance: FUROSEMIDE
  16. DACLATASVIR 60MG BMS [Suspect]
     Active Substance: DACLATASVIR
     Indication: HEPATITIS C
     Route: 048
     Dates: start: 20160223
  17. PROPANOLOL [Concomitant]
     Active Substance: PROPRANOLOL HYDROCHLORIDE
  18. SENNA LAXATIVE [Concomitant]
     Active Substance: SENNOSIDES
  19. VITAMIN D [Concomitant]
     Active Substance: CHOLECALCIFEROL
  20. CAPSAICIN. [Concomitant]
     Active Substance: CAPSAICIN
  21. CHOLECALCIFEROL [Concomitant]
     Active Substance: CHOLECALCIFEROL
  22. CLONIDINE. [Concomitant]
     Active Substance: CLONIDINE
  23. ISOPHANE INSULIN [Concomitant]
     Active Substance: INSULIN NOS

REACTIONS (3)
  - Pulmonary oedema [None]
  - Pneumonia [None]
  - Blood pressure increased [None]

NARRATIVE: CASE EVENT DATE: 20160310
